FAERS Safety Report 8192338-X (Version None)
Quarter: 2012Q1

REPORT INFORMATION
  Report Type: 
  Country: None (occurrence: None)
  Receive Date: 20120307
  Receipt Date: 20120228
  Transmission Date: 20120608
  Serious: Yes (Other)
  Sender: FDA-Public Use
  Company Number: US-BRISTOL-MYERS SQUIBB COMPANY-16422396

PATIENT
  Age: 7 Decade
  Sex: Female

DRUGS (2)
  1. METFORMIN HCL [Suspect]
  2. KOMBIGLYZE XR [Suspect]

REACTIONS (1)
  - PANCREATITIS [None]
